FAERS Safety Report 12275846 (Version 4)
Quarter: 2016Q2

REPORT INFORMATION
  Report Type: Spontaneous
  Country: CN (occurrence: CN)
  Receive Date: 20160418
  Receipt Date: 20160428
  Transmission Date: 20160815
  Serious: Yes (Other)
  Sender: FDA-Public Use
  Company Number: CN-CIPLA LTD.-2016CN03728

PATIENT

DRUGS (1)
  1. TERBINAFINE. [Suspect]
     Active Substance: TERBINAFINE
     Indication: TINEA CRURIS
     Dosage: 250 MG/DAY
     Route: 048

REACTIONS (2)
  - Lichenoid keratosis [Recovered/Resolved]
  - Nail disorder [Recovered/Resolved]
